FAERS Safety Report 20942214 (Version 1)
Quarter: 2022Q2

REPORT INFORMATION
  Report Type: Spontaneous
  Country: US (occurrence: US)
  Receive Date: 20220610
  Receipt Date: 20220610
  Transmission Date: 20220721
  Serious: No
  Sender: FDA-Public Use
  Company Number: US-Calliditas-2022CAL00117

PATIENT
  Age: 37 Year
  Sex: Male

DRUGS (2)
  1. TARPEYO [Suspect]
     Active Substance: BUDESONIDE
     Indication: IgA nephropathy
     Dosage: 16 MG (4 MG CAPSULES) ONCE DAILY
     Route: 050
     Dates: start: 20220208
  2. JARDIANCE [Concomitant]
     Active Substance: EMPAGLIFLOZIN
     Dosage: HAS STARTED JARDIANCE 10 MG QD

REACTIONS (2)
  - Upper respiratory tract infection [Unknown]
  - Drug ineffective [Unknown]
